FAERS Safety Report 5410919-0 (Version None)
Quarter: 2007Q3

REPORT INFORMATION
  Report Type: 
  Country: None (occurrence: None)
  Receive Date: 20070810
  Receipt Date: 20070807
  Transmission Date: 20080115
  Serious: Yes (Life-Threatening, Hospitalization, Other)
  Sender: FDA-Public Use
  Company Number: HQWYE413729MAY07

PATIENT
  Sex: Female
  Weight: 60.2 kg

DRUGS (11)
  1. SIROLIMUS [Suspect]
     Indication: PROPHYLAXIS AGAINST TRANSPLANT REJECTION
     Route: 065
     Dates: start: 20030926, end: 20070520
  2. DILTIAZEM [Concomitant]
     Indication: HYPERTENSION
     Dosage: UNKNOWN
     Route: 048
     Dates: start: 20061010, end: 20070519
  3. ENALAPRIL MALEATE [Concomitant]
     Indication: HYPERTENSION
     Route: 048
     Dates: start: 20061024, end: 20070519
  4. CANDESARTAN CILEXETIL [Concomitant]
     Indication: HYPERTENSION
     Route: 048
     Dates: start: 20061018, end: 20070519
  5. ALLOPURINOL [Concomitant]
     Indication: HYPERURICAEMIA
     Dosage: 150 MG EVERY 1 CYC
     Route: 048
     Dates: start: 20070517
  6. MACRODANTIN [Concomitant]
     Route: 048
     Dates: start: 20051104, end: 20070516
  7. PRAVASTATINE ^SQUIBB^ [Concomitant]
     Indication: HYPERCHOLESTEROLAEMIA
     Dosage: 30 MG EVERY 1 CYC
     Route: 048
     Dates: start: 20051005, end: 20070519
  8. BEZAFIBRATE [Concomitant]
     Indication: HYPERLIPIDAEMIA
     Route: 048
     Dates: start: 20070328, end: 20070519
  9. OMEPRAZOLE [Concomitant]
     Indication: GASTRITIS
     Route: 048
     Dates: start: 20061024
  10. PREDNISONE TAB [Concomitant]
     Indication: PROPHYLAXIS AGAINST TRANSPLANT REJECTION
     Route: 048
     Dates: start: 20050716, end: 20070523
  11. FUROSEMIDE [Concomitant]
     Indication: HYPERTENSION
     Route: 048
     Dates: start: 20061018, end: 20070516

REACTIONS (2)
  - AZOTAEMIA [None]
  - COMPLICATIONS OF TRANSPLANT SURGERY [None]
